FAERS Safety Report 15112978 (Version 13)
Quarter: 2019Q1

REPORT INFORMATION
  Report Type: Report from Study
  Country: CA (occurrence: CA)
  Receive Date: 20180705
  Receipt Date: 20190122
  Transmission Date: 20190417
  Serious: Yes (Hospitalization, Other)
  Sender: FDA-Public Use
  Company Number: CA-BRISTOL-MYERS SQUIBB COMPANY-BMS-2018-040592

PATIENT
  Age: 26 Year
  Sex: Female

DRUGS (2)
  1. NIVOLUMAB [Suspect]
     Active Substance: NIVOLUMAB
     Indication: MALIGNANT MELANOMA
     Dosage: 3 MG/KG, Q2WK
     Route: 042
     Dates: start: 20180413, end: 20190103
  2. YERVOY [Suspect]
     Active Substance: IPILIMUMAB
     Indication: MALIGNANT MELANOMA
     Dosage: 3 MG/KG, Q3WK
     Route: 065
     Dates: start: 20180413

REACTIONS (27)
  - Dizziness [Unknown]
  - Glossitis [Unknown]
  - Weight increased [Unknown]
  - Red blood cell count decreased [Unknown]
  - Transferrin decreased [Unknown]
  - Blood iron decreased [Unknown]
  - Malignant neoplasm progression [Unknown]
  - Haematocrit decreased [Unknown]
  - Blood lactate dehydrogenase increased [Unknown]
  - Diarrhoea [Unknown]
  - Tri-iodothyronine decreased [Unknown]
  - Blood urea decreased [Unknown]
  - Pain [Unknown]
  - Hospitalisation [Unknown]
  - Rash [Unknown]
  - Weight decreased [Unknown]
  - Pruritus [Unknown]
  - Haemoglobin decreased [Unknown]
  - Skin disorder [Unknown]
  - Granulocyte count increased [Unknown]
  - Mean platelet volume increased [Unknown]
  - Headache [Unknown]
  - Hair growth abnormal [Unknown]
  - Blood thyroid stimulating hormone decreased [Unknown]
  - Fatigue [Recovering/Resolving]
  - Nausea [Unknown]
  - Blood bilirubin decreased [Unknown]

NARRATIVE: CASE EVENT DATE: 20180413
